FAERS Safety Report 7656472-2 (Version None)
Quarter: 2011Q3

REPORT INFORMATION
  Report Type: 
  Country: None (occurrence: None)
  Receive Date: 20110804
  Receipt Date: 20100624
  Transmission Date: 20111222
  Serious: No
  Sender: FDA-Public Use
  Company Number: US-BAUSCH-2010BL003480

PATIENT
  Age: 31 Year
  Sex: Female

DRUGS (2)
  1. OPCON-A [Suspect]
     Indication: EYE IRRITATION
     Route: 047
     Dates: start: 20100611, end: 20100601
  2. OPCON-A [Suspect]
     Indication: DRY EYE
     Route: 047
     Dates: start: 20100611, end: 20100601

REACTIONS (5)
  - EYE PAIN [None]
  - LACRIMATION INCREASED [None]
  - RHINORRHOEA [None]
  - DYSPNOEA [None]
  - EYE IRRITATION [None]
